FAERS Safety Report 5662127-6 (Version None)
Quarter: 2008Q1

REPORT INFORMATION
  Report Type: 
  Country: None (occurrence: None)
  Receive Date: 20080312
  Receipt Date: 20080225
  Transmission Date: 20080703
  Serious: No
  Sender: FDA-Public Use
  Company Number: US-BOEHRINGER INGELHEIM GMBH, GERMANY-2008-BP-01765BP

PATIENT
  Age: 60 Year
  Sex: Female

DRUGS (10)
  1. COMBIVENT [Suspect]
     Indication: EMPHYSEMA
     Route: 055
     Dates: start: 20000101
  2. OXYGEN [Concomitant]
  3. ADVAIR DISKUS 100/50 [Concomitant]
  4. THEOPHYLLINE [Concomitant]
  5. POTASSIUM CHLORIDE [Concomitant]
  6. DIOVAN [Concomitant]
  7. SINGULAIR [Concomitant]
  8. FOSAMAX [Concomitant]
  9. FUROSEMIDE [Concomitant]
  10. XOPENEX [Concomitant]

REACTIONS (3)
  - DYSGEUSIA [None]
  - FEELING JITTERY [None]
  - HEART RATE INCREASED [None]
